FAERS Safety Report 16937457 (Version 10)
Quarter: 2021Q3

REPORT INFORMATION
  Report Type: Report from Study
  Country: US (occurrence: US)
  Receive Date: 20191018
  Receipt Date: 20210917
  Transmission Date: 20211014
  Serious: Yes (Hospitalization)
  Sender: FDA-Public Use
  Company Number: NVSC2019US009113

PATIENT
  Age: 56 Year
  Sex: Female
  Weight: 63.49 kg

DRUGS (6)
  1. CLINDAMYCIN. [Suspect]
     Active Substance: CLINDAMYCIN
     Indication: INJECTION SITE INFECTION
     Dosage: UNK (FOR 12 DAYS)
     Route: 065
  2. AMBRISENTAN [Concomitant]
     Active Substance: AMBRISENTAN
     Indication: PRODUCT USED FOR UNKNOWN INDICATION
     Dosage: UNK
     Route: 065
  3. TADALAFIL. [Concomitant]
     Active Substance: TADALAFIL
     Indication: PRODUCT USED FOR UNKNOWN INDICATION
     Dosage: UNK
     Route: 065
  4. TREPROSTINIL. [Suspect]
     Active Substance: TREPROSTINIL
     Indication: PULMONARY ARTERIAL HYPERTENSION
     Dosage: 150 NG/KG/MIN, CONT
     Route: 042
     Dates: start: 20190522
  5. TREPROSTINIL. [Suspect]
     Active Substance: TREPROSTINIL
     Dosage: UNK
     Route: 065
  6. TREPROSTINIL. [Suspect]
     Active Substance: TREPROSTINIL
     Dosage: 150 NG/KG/MIN, CONT
     Route: 042

REACTIONS (13)
  - Infusion site pain [Unknown]
  - Catheter site swelling [Unknown]
  - Injection site infection [Unknown]
  - Catheter site pain [Unknown]
  - Injection site swelling [Unknown]
  - Inappropriate schedule of product administration [Unknown]
  - Infection [Unknown]
  - Device alarm issue [Unknown]
  - Pyrexia [Unknown]
  - Catheter site haemorrhage [Unknown]
  - Device dislocation [Unknown]
  - Injection site erythema [Unknown]
  - Fungal infection [Unknown]

NARRATIVE: CASE EVENT DATE: 20201020
